FAERS Safety Report 6958463-3 (Version None)
Quarter: 2010Q3

REPORT INFORMATION
  Report Type: 
  Country: None (occurrence: None)
  Receive Date: 20100831
  Receipt Date: 20100823
  Transmission Date: 20110219
  Serious: Yes (Hospitalization)
  Sender: FDA-Public Use
  Company Number: DE-ROCHE-720618

PATIENT
  Age: 53 Year
  Sex: Female
  Weight: 68 kg

DRUGS (5)
  1. BEVACIZUMAB [Suspect]
     Dosage: LAST DOSE PRIOR TO THE EVENT ON 5 AUG 2010.
     Route: 042
     Dates: start: 20100805
  2. PACLITAXEL [Suspect]
     Dosage: LAST DOSE PRIOR TO SAE: 05 AUGUST 2010
     Route: 042
     Dates: start: 20100805
  3. DOXORUBICIN HCL [Suspect]
     Dosage: LAST DOSE PRIOR TO SAE: 05 AUGUST 2010
     Route: 042
     Dates: start: 20100805
  4. TRAMAL [Concomitant]
     Dates: start: 20100809
  5. DIPIDOLOR [Concomitant]
     Dates: start: 20100809, end: 20100810

REACTIONS (1)
  - PLEURAL EFFUSION [None]
